FAERS Safety Report 20029495 (Version 5)
Quarter: 2021Q4

REPORT INFORMATION
  Report Type: Spontaneous
  Country: JP (occurrence: JP)
  Receive Date: 20211103
  Receipt Date: 20211208
  Transmission Date: 20220303
  Serious: Yes (Hospitalization)
  Sender: FDA-Public Use
  Company Number: JP-JNJFOC-20211030242

PATIENT
  Age: 63 Year
  Sex: Female

DRUGS (1)
  1. SIMPONI [Suspect]
     Active Substance: GOLIMUMAB
     Indication: Rheumatoid arthritis
     Dosage: 50.00 MG / 0.50 ML
     Route: 058

REACTIONS (3)
  - Diverticulitis [Recovered/Resolved]
  - Pain [Recovering/Resolving]
  - Device deployment issue [Unknown]
